FAERS Safety Report 8523677-8 (Version None)
Quarter: 2012Q3

REPORT INFORMATION
  Report Type: 
  Country: None (occurrence: None)
  Receive Date: 20120720
  Receipt Date: 20120717
  Transmission Date: 20120928
  Serious: Yes (Hospitalization, Other)
  Sender: FDA-Public Use
  Company Number: US-PFIZER INC-2012172728

PATIENT
  Sex: Female
  Weight: 70.295 kg

DRUGS (2)
  1. HYDROCODONE [Concomitant]
     Dosage: UNK
  2. LYRICA [Suspect]
     Indication: NERVE INJURY
     Dosage: 300MG + 150MG + 300MG A DAY
     Route: 048

REACTIONS (5)
  - CHEST PAIN [None]
  - STRESS [None]
  - DYSPNOEA [None]
  - INCORRECT DOSE ADMINISTERED [None]
  - EMPHYSEMA [None]
